FAERS Safety Report 6827230-3 (Version None)
Quarter: 2010Q3

REPORT INFORMATION
  Report Type: 
  Country: None (occurrence: None)
  Receive Date: 20100709
  Receipt Date: 20100707
  Transmission Date: 20110219
  Serious: Yes (Hospitalization)
  Sender: FDA-Public Use
  Company Number: DE-ABBOTT-10P-062-0638035-00

PATIENT
  Sex: Male

DRUGS (3)
  1. HUMIRA [Suspect]
     Indication: PSORIASIS
     Route: 058
     Dates: start: 20081117
  2. HUMIRA [Suspect]
     Indication: PSORIATIC ARTHROPATHY
  3. ANTIHYPERTENSIVE MEDICATION (NOT SPECIFIED) [Concomitant]
     Indication: HYPERTENSION

REACTIONS (1)
  - STENT PLACEMENT [None]
